FAERS Safety Report 6518498-1 (Version None)
Quarter: 2009Q4

REPORT INFORMATION
  Report Type: 
  Country: None (occurrence: None)
  Receive Date: 20091226
  Receipt Date: 20091216
  Transmission Date: 20100525
  Serious: Yes (Other)
  Sender: FDA-Public Use
  Company Number: JP-JNJFOC-20091205476

PATIENT
  Sex: Female

DRUGS (4)
  1. CRAVIT [Suspect]
     Indication: PHARYNGITIS
     Route: 048
  2. LOXONIN [Interacting]
     Indication: PHARYNGITIS
     Route: 048
  3. DEQUALINIUM CHLORIDE [Suspect]
     Indication: PHARYNGITIS
     Route: 065
  4. MICARDIS [Concomitant]
     Indication: HYPERTENSION
     Route: 048

REACTIONS (6)
  - ATRIOVENTRICULAR BLOCK [None]
  - BRADYARRHYTHMIA [None]
  - DIZZINESS [None]
  - DRUG INTERACTION [None]
  - ELECTROLYTE IMBALANCE [None]
  - SENSORY DISTURBANCE [None]
